FAERS Safety Report 5284281-0 (Version None)
Quarter: 2007Q1

REPORT INFORMATION
  Report Type: 
  Country: None (occurrence: None)
  Receive Date: 20061227
  Receipt Date: 20060907
  Transmission Date: 20070707
  Serious: Yes (Hospitalization)
  Sender: FDA-Public Use
  Company Number: A03200605581

PATIENT
  Age: 14 Year
  Sex: Male

DRUGS (1)
  1. AMBIEN [Suspect]
     Dosage: 1 OR 2 TABLETS ONCE - ORAL
     Route: 048
     Dates: start: 20060903, end: 20060904

REACTIONS (5)
  - AMNESIA [None]
  - DRUG SCREEN POSITIVE [None]
  - HALLUCINATION, VISUAL [None]
  - MEDICATION ERROR [None]
  - REGRESSIVE BEHAVIOUR [None]
